FAERS Safety Report 9908404 (Version 1)
Quarter: 2014Q1

REPORT INFORMATION
  Report Type: Spontaneous
  Country: US (occurrence: None)
  Receive Date: 20140212
  Receipt Date: 20140212
  Transmission Date: 20141002
  Serious: Yes (Death, Hospitalization)
  Sender: FDA-Public Use
  Company Number: None

PATIENT
  Age: 2 Year
  Sex: Female
  Weight: 10.2 kg

DRUGS (4)
  1. DEXAMETHASONE [Suspect]
  2. DOXORUBICINE HYDROCHLORIDE [Suspect]
  3. PEG-L-ASPARAGINASE (PEGASPARGASE, ONCOSPAR) [Suspect]
  4. VINCRISTINE SULFATE [Suspect]

REACTIONS (16)
  - Posturing [None]
  - Cardiac arrest [None]
  - Pulmonary oedema [None]
  - Meningitis candida [None]
  - Pneumonia [None]
  - Parainfluenzae virus infection [None]
  - Pancytopenia [None]
  - Histiocytosis haematophagic [None]
  - Irritability [None]
  - Tachycardia [None]
  - Lactic acidosis [None]
  - Unresponsive to stimuli [None]
  - Apnoea [None]
  - Pupil fixed [None]
  - Pulse absent [None]
  - Medical device complication [None]
